FAERS Safety Report 8079284-7 (Version None)
Quarter: 2012Q1

REPORT INFORMATION
  Report Type: 
  Country: None (occurrence: None)
  Receive Date: 20120128
  Receipt Date: 20110818
  Transmission Date: 20120608
  Serious: No
  Sender: FDA-Public Use
  Company Number: US-ABBOTT-11P-163-0848239-00

PATIENT
  Sex: Female
  Weight: 87.622 kg

DRUGS (2)
  1. HUMIRA [Suspect]
     Indication: CROHN'S DISEASE
     Dates: start: 20110811, end: 20110811
  2. WELLBUTRIN [Suspect]
     Indication: DEPRESSION

REACTIONS (2)
  - NIGHT SWEATS [None]
  - JOINT SWELLING [None]
